FAERS Safety Report 19257157 (Version 1)
Quarter: 2021Q2

REPORT INFORMATION
  Report Type: Spontaneous
  Country: US (occurrence: US)
  Receive Date: 20210514
  Receipt Date: 20210514
  Transmission Date: 20210717
  Serious: No
  Sender: FDA-Public Use
  Company Number: US-TEVA-2021-US-1903415

PATIENT
  Age: 64 Year
  Sex: Female

DRUGS (9)
  1. MYRBETRIQ [Concomitant]
     Active Substance: MIRABEGRON
     Dosage: EXTENDED RELEASE 24 HOURS
     Route: 048
  2. AUSTEDO [Suspect]
     Active Substance: DEUTETRABENAZINE
     Indication: TARDIVE DYSKINESIA
     Dosage: 24 MILLIGRAM DAILY; 1/2 TABLET
     Route: 048
  3. ROPINROLE HCL [Concomitant]
     Route: 048
  4. DOXAZOSIN MESYLATE. [Concomitant]
     Active Substance: DOXAZOSIN MESYLATE
     Route: 048
  5. INVEGA SUSTENNA [Concomitant]
     Active Substance: PALIPERIDONE PALMITATE
     Dosage: SUSPENSION PREFILLED SYRINGE 117 MG, 75ML
     Route: 030
  6. ESTRADIOL. [Concomitant]
     Active Substance: ESTRADIOL
     Route: 048
  7. LATANOPROST. [Concomitant]
     Active Substance: LATANOPROST
  8. COMBIGAN [Concomitant]
     Active Substance: BRIMONIDINE TARTRATE\TIMOLOL MALEATE
     Dosage: 0.2 TO 0.5 %
  9. GABAPENTIN. [Concomitant]
     Active Substance: GABAPENTIN
     Route: 048

REACTIONS (4)
  - Confusional state [Unknown]
  - Somnolence [Unknown]
  - Gait disturbance [Unknown]
  - Pain in extremity [Recovered/Resolved]
